FAERS Safety Report 6049106-4 (Version None)
Quarter: 2009Q1

REPORT INFORMATION
  Report Type: 
  Country: None (occurrence: None)
  Receive Date: 20090123
  Receipt Date: 20090115
  Transmission Date: 20090719
  Serious: Yes (Hospitalization)
  Sender: FDA-Public Use
  Company Number: FR-ASTRAZENECA-2009CG00195

PATIENT
  Age: 76 Year
  Sex: Male

DRUGS (6)
  1. DIPRIVAN [Suspect]
     Route: 042
     Dates: start: 20070221, end: 20070221
  2. NIMBEX [Suspect]
     Dates: start: 20070221, end: 20070221
  3. REMIFENTANIL [Suspect]
     Dates: start: 20070221, end: 20070221
  4. ACUPAN [Suspect]
     Dates: start: 20070221, end: 20070221
  5. PERFALGAN [Suspect]
     Dates: start: 20070221, end: 20070221
  6. DYNASTAT [Suspect]
     Dates: start: 20070221, end: 20070221

REACTIONS (3)
  - ANAPHYLACTOID REACTION [None]
  - BLISTER [None]
  - ERYTHEMA [None]
